FAERS Safety Report 9443518 (Version 2)
Quarter: 2017Q2

REPORT INFORMATION
  Report Type: Spontaneous
  Country: US (occurrence: US)
  Receive Date: 20130806
  Receipt Date: 20170615
  Transmission Date: 20170830
  Serious: No
  Sender: FDA-Public Use
  Company Number: US-PFIZER INC-2013225474

PATIENT
  Age: 71 Year
  Sex: Female

DRUGS (7)
  1. LEFLUNOMIDE. [Concomitant]
     Active Substance: LEFLUNOMIDE
     Dosage: 20 MG (1 TABLET), 1X/DAY,5 REFILLS, FOR A TOTAL OF 30
     Dates: start: 20121106
  2. XELJANZ [Suspect]
     Active Substance: TOFACITINIB CITRATE
     Indication: RHEUMATOID ARTHRITIS
     Dosage: 5 MG (1 TABLET), 2X/DAY
     Route: 048
  3. HYDROCODONE-ACETAMINOPHEN [Concomitant]
     Active Substance: ACETAMINOPHEN\HYDROCODONE
     Dosage: 5 MG/325 MG TABLET (1 TABLET),Q6H PRN,30 DAYS, FOR A TOTAL OF 100 AND END ON 06AUG2013
     Route: 048
     Dates: start: 20130708
  4. LEFLUNOMIDE. [Concomitant]
     Active Substance: LEFLUNOMIDE
     Dosage: 20 MG (1 TABLET), 1X/DAY,5 REFILLS, FOR A TOTAL OF 30
     Dates: start: 20130611
  5. DICLOFENAC SODIUM. [Concomitant]
     Active Substance: DICLOFENAC SODIUM
     Dosage: 75 MG (1 TABLET), 2X/DAY,5 REFILLS, FOR A TOTAL OF 60
     Route: 048
     Dates: start: 20120817
  6. MOBIC [Concomitant]
     Active Substance: MELOXICAM
     Dosage: 15 MG
     Dates: end: 20100913
  7. OXAPROZIN. [Concomitant]
     Active Substance: OXAPROZIN
     Dosage: 600 MG (1 TABLET), 2X/DAY,90 DAYS, 3 REFILLS, FOR A TOTAL OF 180 AND END ON 26FEB2014
     Route: 048
     Dates: start: 20130304

REACTIONS (5)
  - Musculoskeletal stiffness [Unknown]
  - Arthralgia [Unknown]
  - Loss of personal independence in daily activities [Unknown]
  - Back pain [Unknown]
  - Swelling [Unknown]
